FAERS Safety Report 4530811-3 (Version None)
Quarter: 2004Q4

REPORT INFORMATION
  Report Type: 
  Country: None (occurrence: None)
  Receive Date: 20041216
  Receipt Date: 20041129
  Transmission Date: 20050328
  Serious: Yes (Death, Hospitalization)
  Sender: FDA-Public Use
  Company Number: EWC041241669

PATIENT
  Sex: Male

DRUGS (4)
  1. ZYPREXA [Suspect]
     Indication: AGGRESSION
     Dosage: 10 MG
  2. EPILIM (VALPROATE SODIUM) [Concomitant]
  3. CLOPIXOL ACUPHASE (ZUCLOPENTHIXOL ACETATE) [Concomitant]
  4. DIAZEPAM [Concomitant]

REACTIONS (1)
  - REFUSAL OF TREATMENT BY RELATIVE [None]
